FAERS Safety Report 20390911 (Version 1)
Quarter: 2022Q1

REPORT INFORMATION
  Report Type: Spontaneous
  Country: ES (occurrence: ES)
  Receive Date: 20220128
  Receipt Date: 20220128
  Transmission Date: 20220423
  Serious: Yes (Life-Threatening, Hospitalization, Other)
  Sender: FDA-Public Use
  Company Number: ES-MLMSERVICE-20211021-3178539-1

PATIENT
  Age: 62 Year
  Sex: Male
  Weight: 92 kg

DRUGS (13)
  1. HYDROXYCHLOROQUINE [Suspect]
     Active Substance: HYDROXYCHLOROQUINE
     Indication: COVID-19
     Dosage: 200 MG, BID
     Route: 048
     Dates: start: 202003, end: 2020
  2. HYDROXYCHLOROQUINE [Suspect]
     Active Substance: HYDROXYCHLOROQUINE
     Dosage: 400 MG, BID
     Route: 048
     Dates: start: 202003, end: 202003
  3. AZITHROMYCIN [Suspect]
     Active Substance: AZITHROMYCIN
     Indication: COVID-19
     Dosage: 500 MG, QD
     Route: 048
     Dates: start: 202003, end: 202003
  4. PREDNISONE [Suspect]
     Active Substance: PREDNISONE
     Indication: COVID-19
     Dosage: 15 MG, QD
     Route: 048
     Dates: start: 20200829
  5. PREDNISONE [Suspect]
     Active Substance: PREDNISONE
     Dosage: 30 MG, QD
     Route: 048
     Dates: start: 20200828, end: 20200828
  6. TRIAMCINOLONE ACETONIDE [Suspect]
     Active Substance: TRIAMCINOLONE ACETONIDE
     Indication: Arthralgia
     Dosage: 40 MG
     Route: 014
     Dates: start: 20200530
  7. TRIAMCINOLONE ACETONIDE [Suspect]
     Active Substance: TRIAMCINOLONE ACETONIDE
     Indication: Joint swelling
     Dosage: INTRA-ARTICULAR SLOW-RELEASE
     Route: 014
  8. HYDROCHLOROTHIAZIDE [Concomitant]
     Active Substance: HYDROCHLOROTHIAZIDE
  9. SALMETEROL [Concomitant]
     Active Substance: SALMETEROL
     Indication: COVID-19
     Dosage: UNK
     Route: 055
     Dates: start: 20200828
  10. HYALURONIC ACID [Concomitant]
     Active Substance: HYALURONIC ACID
     Indication: Arthralgia
     Dosage: INTRA-ARTICULAR SLOW-RELEASE
     Route: 014
     Dates: start: 20200530
  11. HYALURONIC ACID [Concomitant]
     Active Substance: HYALURONIC ACID
     Indication: Joint swelling
     Dosage: INTRA-ARTICULAR SLOW-RELEASE
     Route: 014
  12. ALLOPURINOL [Concomitant]
     Active Substance: ALLOPURINOL
  13. OLMESARTAN [Concomitant]
     Active Substance: OLMESARTAN
     Dosage: UNK

REACTIONS (14)
  - Acute respiratory distress syndrome [Recovered/Resolved]
  - Respiratory failure [Recovered/Resolved]
  - COVID-19 [Recovered/Resolved]
  - Ageusia [Recovered/Resolved]
  - Condition aggravated [Recovered/Resolved]
  - Dyspnoea [Recovered/Resolved]
  - Cough [Recovered/Resolved]
  - Chills [Recovered/Resolved]
  - Pyrexia [Recovered/Resolved]
  - Myalgia [Recovered/Resolved]
  - Anosmia [Recovered/Resolved]
  - Pneumonia [Recovered/Resolved]
  - Lymphopenia [Recovered/Resolved]
  - Off label use [Unknown]

NARRATIVE: CASE EVENT DATE: 20200301
